FAERS Safety Report 9758662 (Version 1)
Quarter: 2013Q4

REPORT INFORMATION
  Report Type: Spontaneous
  Country: US (occurrence: None)
  Receive Date: 20131216
  Receipt Date: 20131216
  Transmission Date: 20140711
  Serious: Yes (Other)
  Sender: FDA-Public Use
  Company Number: RB-46947-2012

PATIENT
  Age: 30 Year
  Sex: Female

DRUGS (2)
  1. SUBOXONE [Suspect]
     Indication: DRUG DEPENDENCE
     Dosage: (SUBOXONE LM; 8/2 MG DAILY SUBLINGUAL)
  2. SUBOXONE [Suspect]
     Indication: DRUG DEPENDENCE
     Dosage: (UNKNOWN DOSING DETAILS UNKNOWN)

REACTIONS (4)
  - Candida infection [None]
  - Swollen tongue [None]
  - Stomatitis [None]
  - Drug intolerance [None]
